FAERS Safety Report 8004803-6 (Version None)
Quarter: 2011Q4

REPORT INFORMATION
  Report Type: 
  Country: None (occurrence: None)
  Receive Date: 20111223
  Receipt Date: 20111219
  Transmission Date: 20120403
  Serious: Yes (Other)
  Sender: FDA-Public Use
  Company Number: US-ASTELLAS-2011US006595

PATIENT
  Sex: Male

DRUGS (1)
  1. ERLOTINIB HYDROCHLORIDE [Suspect]
     Indication: LUNG NEOPLASM MALIGNANT
     Dosage: 150 MG, UID/QD
     Route: 048
     Dates: start: 20110929

REACTIONS (5)
  - NASOPHARYNGITIS [None]
  - NEUROPATHY PERIPHERAL [None]
  - SURGERY [None]
  - PROCEDURAL PAIN [None]
  - ABDOMINAL DISTENSION [None]
